FAERS Safety Report 5216704-7 (Version None)
Quarter: 2007Q1

REPORT INFORMATION
  Report Type: 
  Country: None (occurrence: None)
  Receive Date: 20061130
  Receipt Date: 20060530
  Transmission Date: 20070707
  Serious: Yes (Other)
  Sender: FDA-Public Use
  Company Number: US200603003477

PATIENT
  Age: 55 Year
  Sex: Female
  Weight: 83.4 kg

DRUGS (3)
  1. ZYPREXA [Suspect]
     Dosage: SEE IMAGE
     Dates: start: 20040101, end: 20050101
  2. ZYPREXA [Suspect]
     Dosage: SEE IMAGE
     Dates: start: 19990201
  3. THORAZINE [Concomitant]

REACTIONS (3)
  - DIABETES MELLITUS [None]
  - HYPERGLYCAEMIA [None]
  - PANCREATITIS [None]
